FAERS Safety Report 7411983-X (Version None)
Quarter: 2011Q2

REPORT INFORMATION
  Report Type: 
  Country: None (occurrence: None)
  Receive Date: 20110404
  Receipt Date: 20110321
  Transmission Date: 20111010
  Serious: Yes (Congenital Anomaly)
  Sender: FDA-Public Use
  Company Number: IDA-00502

PATIENT

DRUGS (2)
  1. AVLOCARDYL (PROPRANOLOL) [Suspect]
     Indication: MIGRAINE
     Dosage: TRANSPLACENTAL
     Route: 064
     Dates: end: 20090501
  2. DESLORATADINE [Suspect]
     Indication: RHINITIS ALLERGIC
     Dosage: TRANSPLACENTAL
     Route: 064
     Dates: end: 20090501

REACTIONS (2)
  - MATERNAL DRUGS AFFECTING FOETUS [None]
  - RENAL APLASIA [None]
